FAERS Safety Report 21468756 (Version 1)
Quarter: 2022Q4

REPORT INFORMATION
  Report Type: Spontaneous
  Country: NL (occurrence: NL)
  Receive Date: 20221018
  Receipt Date: 20221018
  Transmission Date: 20230113
  Serious: Yes (Other)
  Sender: FDA-Public Use
  Company Number: NL-SUN PHARMACEUTICAL INDUSTRIES LTD-2022RR-358518

PATIENT
  Sex: Male
  Weight: 78 kg

DRUGS (4)
  1. TAMSULOSIN [Suspect]
     Active Substance: TAMSULOSIN
     Indication: Muscle relaxant therapy
     Dosage: UNK
     Route: 065
     Dates: start: 20220825, end: 20220901
  2. TRAVOPROST [Concomitant]
     Active Substance: TRAVOPROST
     Indication: Product used for unknown indication
     Dosage: OOGDRUPPELS, 40 MICROG/ML (MICROGRAMS PER MILLILITER)
     Route: 065
  3. ACETAZOLAMIDE [Concomitant]
     Active Substance: ACETAZOLAMIDE
     Indication: Product used for unknown indication
     Dosage: TABLET, 250 MG (MILLIGRAM)
     Route: 065
  4. PRADAXA [Concomitant]
     Active Substance: DABIGATRAN ETEXILATE MESYLATE
     Indication: Product used for unknown indication
     Dosage: CAPSULE, 110 MG (MILLIGRAM)
     Route: 065

REACTIONS (1)
  - Atrial fibrillation [Recovered/Resolved]
